FAERS Safety Report 9700569 (Version 3)
Quarter: 2013Q4

REPORT INFORMATION
  Report Type: Report from Study
  Country: FR (occurrence: FR)
  Receive Date: 20131121
  Receipt Date: 20131122
  Transmission Date: 20140711
  Serious: Yes (Other)
  Sender: FDA-Public Use
  Company Number: PHHY2013FR106896

PATIENT
  Age: 79 Year
  Sex: Female
  Weight: 67 kg

DRUGS (11)
  1. ACLASTA/ZOLEDRONATE [Suspect]
     Indication: OSTEOPOROSIS
     Dosage: 5 MG, PER YEAR
     Route: 042
     Dates: start: 201106
  2. ACLASTA/ZOLEDRONATE [Suspect]
     Dosage: 5 MG, PER YEAR
     Route: 042
     Dates: start: 201210
  3. CRESTOR [Concomitant]
     Indication: HYPERCHOLESTEROLAEMIA
     Dosage: UNK
     Dates: start: 2005
  4. COLCHICINE [Concomitant]
     Indication: CHONDROCALCINOSIS
     Dosage: 1 G, UNK
     Dates: start: 2010, end: 2012
  5. VOLTARENE ^CIBA-GEIGY^ [Concomitant]
     Dosage: UNK
     Dates: start: 2012
  6. CALTRATE [Concomitant]
     Dosage: UNK UKN, UNK
     Dates: start: 2012
  7. UVEDOSE [Concomitant]
     Dosage: UNK
     Dates: start: 2012
  8. PERINDOPRIL [Concomitant]
     Dosage: UNK
     Dates: start: 2012
  9. XYZALL [Concomitant]
     Dosage: UNK
     Dates: start: 2012
  10. CORTISONE [Concomitant]
     Dosage: UNK
     Dates: start: 2012
  11. CORTANCYL [Concomitant]
     Indication: TEMPORAL ARTERITIS
     Dosage: 10 MG, UNK
     Dates: start: 2012

REACTIONS (2)
  - Phlebitis [Recovered/Resolved]
  - Temporal arteritis [Not Recovered/Not Resolved]
